FAERS Safety Report 9685809 (Version 2)
Quarter: 2013Q4

REPORT INFORMATION
  Report Type: Spontaneous
  Country: US (occurrence: US)
  Receive Date: 20131113
  Receipt Date: 20131220
  Transmission Date: 20140711
  Serious: No
  Sender: FDA-Public Use
  Company Number: US-PFIZER INC-2013322967

PATIENT
  Age: 76 Year
  Sex: Female

DRUGS (4)
  1. CELEBREX [Suspect]
     Dosage: UNK, DAILY
     Route: 048
  2. CALCIUM CARBONATE [Suspect]
     Dosage: UNK
  3. LISINOPRIL [Suspect]
     Dosage: UNK
     Route: 048
  4. CODEINE [Suspect]
     Dosage: UNK

REACTIONS (1)
  - Drug hypersensitivity [Unknown]
